FAERS Safety Report 6340715-1 (Version None)
Quarter: 2009Q3

REPORT INFORMATION
  Report Type: 
  Country: None (occurrence: None)
  Receive Date: 20090904
  Receipt Date: 20090831
  Transmission Date: 20100115
  Serious: Yes (Hospitalization)
  Sender: FDA-Public Use
  Company Number: FR-BRISTOL-MYERS SQUIBB COMPANY-14031736

PATIENT
  Age: 34 Year
  Sex: Male
  Weight: 73 kg

DRUGS (7)
  1. SUSTIVA [Suspect]
     Indication: HIV INFECTION
     Route: 048
     Dates: start: 20071221
  2. TRUVADA [Suspect]
     Indication: HIV INFECTION
     Dosage: 1 DOSAGE FORM = 1 CAPSULE
     Route: 048
     Dates: start: 20071221, end: 20080103
  3. BACTRIM [Suspect]
     Indication: INFECTION
     Route: 048
     Dates: start: 20071012
  4. ANSATIPINE [Suspect]
     Indication: TUBERCULOSIS
     Route: 048
     Dates: start: 20071027, end: 20080104
  5. MYAMBUTOL [Suspect]
     Indication: TUBERCULOSIS
     Route: 048
     Dates: start: 20071026
  6. RIMIFON [Suspect]
     Indication: TUBERCULOSIS
     Route: 048
     Dates: start: 20071026
  7. ZECLAR [Suspect]
     Indication: INFECTION
     Dosage: 1X2D
     Route: 048
     Dates: start: 20071026

REACTIONS (2)
  - HISTIOCYTOSIS HAEMATOPHAGIC [None]
  - IMMUNE RECONSTITUTION SYNDROME [None]
